FAERS Safety Report 15367971 (Version 1)
Quarter: 2018Q3

REPORT INFORMATION
  Report Type: Spontaneous
  Country: US (occurrence: US)
  Receive Date: 20180904
  Receipt Date: 20180904
  Transmission Date: 20181010
  Serious: Yes (Hospitalization)
  Sender: FDA-Public Use
  Company Number: None

PATIENT
  Age: 66 Year
  Sex: Male

DRUGS (15)
  1. DEXAMETHASONE. [Concomitant]
     Active Substance: DEXAMETHASONE
  2. YESCARTA [Suspect]
     Active Substance: AXICABTAGENE CILOLEUCEL
     Indication: DIFFUSE LARGE B-CELL LYMPHOMA
     Dates: start: 20180604
  3. ACYCLOVIR. [Concomitant]
     Active Substance: ACYCLOVIR
  4. ALLOPURINOL. [Concomitant]
     Active Substance: ALLOPURINOL
  5. FLUDARABINE [Concomitant]
     Active Substance: FLUDARABINE PHOSPHATE
  6. PIPERACILLIN/TAZOBACTAM [Concomitant]
     Active Substance: PIPERACILLIN SODIUM\TAZOBACTAM SODIUM
  7. ZOFRAN [Concomitant]
     Active Substance: ONDANSETRON HYDROCHLORIDE
  8. LAMIVUDINE. [Concomitant]
     Active Substance: LAMIVUDINE
  9. BACTRIM DS [Concomitant]
     Active Substance: SULFAMETHOXAZOLE\TRIMETHOPRIM
  10. CEFEPIME [Concomitant]
     Active Substance: CEFEPIME HYDROCHLORIDE
  11. FLUCONAZOLE. [Concomitant]
     Active Substance: FLUCONAZOLE
  12. LEVETIRACETAM. [Concomitant]
     Active Substance: LEVETIRACETAM
  13. METOCLOPRAMIDE. [Concomitant]
     Active Substance: METOCLOPRAMIDE
  14. CYTOXAN [Concomitant]
     Active Substance: CYCLOPHOSPHAMIDE
  15. LEVOFLOXACIN. [Concomitant]
     Active Substance: LEVOFLOXACIN

REACTIONS (19)
  - Abdominal pain [None]
  - Ileus [None]
  - Enteritis [None]
  - Headache [None]
  - Cerebrovascular accident [None]
  - Constipation [None]
  - Lower gastrointestinal haemorrhage [None]
  - Pain in extremity [None]
  - Pyrexia [None]
  - Vomiting [None]
  - Dehydration [None]
  - Tremor [None]
  - Neutropenia [None]
  - Nausea [None]
  - Neurotoxicity [None]
  - Cognitive disorder [None]
  - Colitis [None]
  - Hypoxia [None]
  - Deep vein thrombosis [None]
